FAERS Safety Report 8860049 (Version 3)
Quarter: 2013Q1

REPORT INFORMATION
  Report Type: Spontaneous
  Country: SE (occurrence: SE)
  Receive Date: 20121025
  Receipt Date: 20130211
  Transmission Date: 20140127
  Serious: Yes (Other)
  Sender: FDA-Public Use
  Company Number: SE-BIOGENIDEC-2012BI045747

PATIENT
  Age: 34 Year
  Sex: Female

DRUGS (8)
  1. TYSABRI [Suspect]
     Indication: MULTIPLE SCLEROSIS
     Route: 042
     Dates: start: 20070926, end: 20110701
  2. ALBUMIN [Concomitant]
  3. CALCIUM WITH VITAMIN D [Concomitant]
  4. PARACETAMOL [Concomitant]
  5. MODAFINILE [Concomitant]
  6. LORATADINE [Concomitant]
  7. OMEPRAZOLE [Concomitant]
  8. VITAMIN B [Concomitant]

REACTIONS (1)
  - Abortion spontaneous [Recovered/Resolved]
